FAERS Safety Report 9401867 (Version 1)
Quarter: 2013Q3

REPORT INFORMATION
  Report Type: Spontaneous
  Country: US (occurrence: US)
  Receive Date: 20130716
  Receipt Date: 20130716
  Transmission Date: 20140515
  Serious: Yes (Hospitalization)
  Sender: FDA-Public Use
  Company Number: US-GENZYME-FABR-1003419

PATIENT
  Sex: Male

DRUGS (1)
  1. FABRAZYME [Suspect]
     Indication: FABRY^S DISEASE
     Dosage: EVERY TWO WEEKS
     Route: 042

REACTIONS (2)
  - Renal failure chronic [Not Recovered/Not Resolved]
  - Blood creatinine increased [Not Recovered/Not Resolved]
